APPROVED DRUG PRODUCT: RIZATRIPTAN BENZOATE
Active Ingredient: RIZATRIPTAN BENZOATE
Strength: EQ 10MG BASE
Dosage Form/Route: TABLET, ORALLY DISINTEGRATING;ORAL
Application: A201914 | Product #002
Applicant: GLENMARK PHARMACEUTICALS LTD
Approved: Jul 1, 2013 | RLD: No | RS: No | Type: DISCN